FAERS Safety Report 9988192 (Version 4)
Quarter: 2014Q2

REPORT INFORMATION
  Report Type: Report from Study
  Country: CA (occurrence: CA)
  Receive Date: 20140309
  Receipt Date: 20140619
  Transmission Date: 20141212
  Serious: Yes (Hospitalization)
  Sender: FDA-Public Use
  Company Number: CA-CELGENEUS-028-C4047-14030138

PATIENT
  Age: 68 Year
  Sex: Male
  Weight: 52.5 kg

DRUGS (27)
  1. CC-4047 [Suspect]
     Indication: PLASMA CELL MYELOMA
     Dosage: 4 MILLIGRAM
     Route: 048
     Dates: start: 20121106
  2. CC-4047 [Suspect]
     Route: 048
     Dates: start: 20140130, end: 20140218
  3. CC-4047 [Suspect]
     Dosage: 4 MILLIGRAM
     Route: 048
     Dates: start: 20140227, end: 20140227
  4. CC-4047 [Suspect]
     Dosage: 4 MILLIGRAM
     Route: 048
     Dates: start: 20140306
  5. DEXAMETHASONE [Suspect]
     Indication: PLASMA CELL MYELOMA
     Route: 048
     Dates: start: 20111031
  6. DEXAMETHASONE [Suspect]
     Route: 048
     Dates: start: 20140120, end: 20140218
  7. DEXAMETHASONE [Suspect]
     Route: 048
     Dates: start: 20140227, end: 20140227
  8. DEXAMETHASONE [Suspect]
     Dosage: 20 MILLIGRAM
     Route: 048
     Dates: start: 20140306
  9. PRAMIPEXOLE [Concomitant]
     Indication: PARKINSON^S DISEASE
     Dosage: 1 MILLIGRAM
     Route: 048
     Dates: start: 1999
  10. PRAMIPEXOLE [Concomitant]
     Dosage: .75 MILLIGRAM
     Route: 048
     Dates: start: 1999
  11. APO-LEVOCARB [Concomitant]
     Indication: PARKINSON^S DISEASE
     Dosage: 50/200MG
     Route: 048
     Dates: start: 1999
  12. APO-LEVOCARB [Concomitant]
     Dosage: 25/100MG
     Route: 048
     Dates: start: 1999
  13. SENOKOT-S [Concomitant]
     Indication: CONSTIPATION
     Dosage: 6.8/50MG
     Route: 048
     Dates: start: 20090512
  14. COLACE [Concomitant]
     Indication: CONSTIPATION
     Dosage: 1-2
     Route: 048
     Dates: start: 20090512
  15. SALBUTAMOL [Concomitant]
     Indication: ASTHMA
     Route: 055
     Dates: start: 1951
  16. VITAMIN D [Concomitant]
     Indication: SUPPLEMENTATION THERAPY
     Dosage: 1000 MILLIGRAM
     Route: 048
     Dates: start: 2009
  17. PAMIDRONATE [Concomitant]
     Indication: PROPHYLAXIS
     Dosage: 30 MILLIGRAM
     Route: 041
     Dates: start: 200908
  18. ONDANSETRON [Concomitant]
     Indication: NAUSEA
     Route: 041
     Dates: start: 20090827
  19. VALACYCLOVIR [Concomitant]
     Indication: INFECTION PROPHYLAXIS
     Dosage: 500 MILLIGRAM
     Route: 048
     Dates: start: 2009
  20. FRAGMIN [Concomitant]
     Indication: THROMBOSIS PROPHYLAXIS
     Dosage: 5000 IU (INTERNATIONAL UNIT)
     Route: 058
     Dates: start: 200908
  21. MORPHINE SULFATE [Concomitant]
     Indication: BACK PAIN
     Dosage: 15 MILLIGRAM
     Route: 048
     Dates: start: 20090810
  22. MORPHINE SULFATE [Concomitant]
     Dosage: 30 MILLIGRAM
     Route: 048
     Dates: start: 20090810
  23. MORPHINE SULFATE [Concomitant]
     Route: 048
     Dates: start: 20090810
  24. LISINOPRIL [Concomitant]
     Indication: HYPERTENSION
     Dosage: 20 MILLIGRAM
     Route: 048
     Dates: start: 20100301, end: 201209
  25. LISINOPRIL [Concomitant]
     Dosage: 30 MILLIGRAM
     Route: 048
     Dates: start: 201209
  26. ASPIRIN [Concomitant]
     Indication: THROMBOSIS PROPHYLAXIS
     Dosage: 8 MILLIGRAM
     Route: 048
     Dates: start: 20111106
  27. CLINDAMYCIN [Concomitant]
     Indication: CELLULITIS
     Route: 041
     Dates: start: 20131123, end: 20131130

REACTIONS (1)
  - Cellulitis [Recovered/Resolved with Sequelae]
